FAERS Safety Report 14909694 (Version 1)
Quarter: 2018Q2

REPORT INFORMATION
  Report Type: Spontaneous
  Country: DE (occurrence: DE)
  Receive Date: 20180517
  Receipt Date: 20180517
  Transmission Date: 20180711
  Serious: Yes (Hospitalization)
  Sender: FDA-Public Use
  Company Number: DE-JNJFOC-20180519380

PATIENT
  Age: 89 Year
  Sex: Male

DRUGS (10)
  1. MOLSIDOMIN [Concomitant]
     Active Substance: MOLSIDOMINE
     Route: 065
  2. METAMIZOLE SODIUM [Concomitant]
     Active Substance: METAMIZOLE SODIUM
     Route: 065
  3. FELODIPIN [Concomitant]
     Active Substance: FELODIPINE
     Route: 065
  4. MELPERON [Concomitant]
     Active Substance: MELPERONE
     Route: 065
  5. XARELTO [Suspect]
     Active Substance: RIVAROXABAN
     Indication: PRODUCT USED FOR UNKNOWN INDICATION
     Route: 048
  6. CANDESARTAN. [Concomitant]
     Active Substance: CANDESARTAN
     Route: 065
  7. GABAPENTIN. [Concomitant]
     Active Substance: GABAPENTIN
     Route: 065
  8. METOPROLOL. [Concomitant]
     Active Substance: METOPROLOL
     Route: 065
  9. RISPERIDONE. [Concomitant]
     Active Substance: RISPERIDONE
     Route: 065
  10. FUROSEMIDE. [Concomitant]
     Active Substance: FUROSEMIDE
     Route: 065

REACTIONS (1)
  - Anaemia [Unknown]

NARRATIVE: CASE EVENT DATE: 20161013
